FAERS Safety Report 25522528 (Version 2)
Quarter: 2025Q3

REPORT INFORMATION
  Report Type: Spontaneous
  Country: EU (occurrence: EU)
  Receive Date: 20250707
  Receipt Date: 20250929
  Transmission Date: 20251021
  Serious: Yes (Other)
  Sender: NOVO NORDISK
  Company Number: EU-NOVOPROD-1469603

PATIENT
  Age: 62 Year
  Sex: Male
  Weight: 119 kg

DRUGS (3)
  1. WEGOVY [Suspect]
     Active Substance: SEMAGLUTIDE
     Indication: Obesity
     Dosage: 2.4 MG, QW
     Dates: start: 20250202, end: 20250605
  2. LIPTRUZET [Concomitant]
     Active Substance: ATORVASTATIN CALCIUM\EZETIMIBE
     Indication: Blood cholesterol abnormal
     Route: 048
     Dates: start: 202301
  3. RABEPRAZOLE SODIUM [Concomitant]
     Active Substance: RABEPRAZOLE SODIUM
     Indication: Gastrooesophageal reflux disease
     Route: 048
     Dates: start: 2020

REACTIONS (5)
  - Oesophagitis [Unknown]
  - Pancreatitis acute [Unknown]
  - Colitis [Unknown]
  - Colitis ulcerative [Unknown]
  - Diverticulum intestinal [Unknown]
